FAERS Safety Report 15230952 (Version 1)
Quarter: 2018Q3

REPORT INFORMATION
  Report Type: Spontaneous
  Country: US (occurrence: US)
  Receive Date: 20180802
  Receipt Date: 20180802
  Transmission Date: 20181010
  Serious: Yes (Other)
  Sender: FDA-Public Use
  Company Number: US-BAYER-2018-140150

PATIENT
  Age: 71 Year
  Sex: Female

DRUGS (2)
  1. AMBRISENTAN [Suspect]
     Active Substance: AMBRISENTAN
     Indication: PULMONARY ARTERIAL HYPERTENSION
     Dosage: 5 MG, QD
     Dates: start: 20150209
  2. ADEMPAS [Suspect]
     Active Substance: RIOCIGUAT
     Indication: PRODUCT USED FOR UNKNOWN INDICATION
     Dosage: 2 MG, TID

REACTIONS (5)
  - Muscle spasms [Unknown]
  - Fatigue [Not Recovered/Not Resolved]
  - Tachycardia [Unknown]
  - Malaise [Not Recovered/Not Resolved]
  - Rectal haemorrhage [Unknown]
